FAERS Safety Report 23468980 (Version 4)
Quarter: 2024Q3

REPORT INFORMATION
  Report Type: Report from Study
  Country: CA (occurrence: CA)
  Receive Date: 20240202
  Receipt Date: 20240803
  Transmission Date: 20241017
  Serious: Yes (Other)
  Sender: JOHNSON AND JOHNSON
  Company Number: CA-JNJFOC-20240168506

PATIENT
  Age: 59 Year
  Sex: Female
  Weight: 94 kg

DRUGS (4)
  1. REMICADE [Suspect]
     Active Substance: INFLIXIMAB
     Indication: Crohn^s disease
     Dosage: NO OF UNITS INVOLVED 8
     Route: 041
     Dates: start: 20210125
  2. REMICADE [Suspect]
     Active Substance: INFLIXIMAB
     Dosage: STRENGTH: 100MG/10ML
     Route: 041
  3. REMICADE [Suspect]
     Active Substance: INFLIXIMAB
     Dosage: STRENGTH: 100MG/10ML
     Route: 041
  4. REMICADE [Suspect]
     Active Substance: INFLIXIMAB
     Route: 042
     Dates: start: 20210611, end: 20240710

REACTIONS (9)
  - Rectal abscess [Recovered/Resolved]
  - Diabetes mellitus inadequate control [Unknown]
  - Crohn^s disease [Unknown]
  - Abdominal pain [Unknown]
  - COVID-19 [Recovered/Resolved]
  - Inappropriate schedule of product administration [Unknown]
  - Drug hypersensitivity [Recovered/Resolved]
  - Infusion site pain [Not Recovered/Not Resolved]
  - Drug ineffective [Unknown]

NARRATIVE: CASE EVENT DATE: 20231001
